FAERS Safety Report 15760406 (Version 2)
Quarter: 2019Q1

REPORT INFORMATION
  Report Type: Spontaneous
  Country: AU (occurrence: AU)
  Receive Date: 20181226
  Receipt Date: 20190121
  Transmission Date: 20190417
  Serious: Yes (Life-Threatening, Other)
  Sender: FDA-Public Use
  Company Number: AU-BAYER-2018-237364

PATIENT
  Age: 47 Year
  Sex: Female

DRUGS (1)
  1. MIRENA [Suspect]
     Active Substance: LEVONORGESTREL
     Dosage: 20 MCG/24HR, CONT
     Route: 015
     Dates: start: 20181120, end: 20181123

REACTIONS (3)
  - Thrombotic microangiopathy [None]
  - Nephropathy [None]
  - Atypical haemolytic uraemic syndrome [None]

NARRATIVE: CASE EVENT DATE: 20181123
